FAERS Safety Report 4789575-0 (Version None)
Quarter: 2005Q4

REPORT INFORMATION
  Report Type: 
  Country: None (occurrence: None)
  Receive Date: 20051005
  Receipt Date: 20051005
  Transmission Date: 20060501
  Serious: Yes (Hospitalization)
  Sender: FDA-Public Use
  Company Number: None

PATIENT
  Age: 55 Year
  Sex: Female
  Weight: 66 kg

DRUGS (5)
  1. WARFARIN SODIUM [Suspect]
     Indication: PROPHYLAXIS
     Dosage: 10MG/7.5MG ALT DAYS  TARGET INR 3-4
  2. ASPIRIN [Suspect]
     Dosage: 81 MG
  3. CLOPIDOGREL [Suspect]
     Dosage: 75 MG QD
  4. METOPROLOL XL [Concomitant]
  5. ATORVASTATIN [Concomitant]

REACTIONS (4)
  - GROIN PAIN [None]
  - HAEMATOMA [None]
  - INTERNATIONAL NORMALISED RATIO INCREASED [None]
  - RETROPERITONEAL HAEMATOMA [None]
